FAERS Safety Report 17290999 (Version 1)
Quarter: 2020Q1

REPORT INFORMATION
  Report Type: Spontaneous
  Country: ES (occurrence: ES)
  Receive Date: 20200121
  Receipt Date: 20200121
  Transmission Date: 20200409
  Serious: Yes (Other)
  Sender: FDA-Public Use
  Company Number: ES-BAYER-2020-002691

PATIENT
  Age: 39 Year
  Sex: Male

DRUGS (1)
  1. ULTRAVIST [Suspect]
     Active Substance: IOPROMIDE
     Dosage: UNK, ONCE

REACTIONS (4)
  - Erythema [None]
  - Syncope [None]
  - Hyperhidrosis [None]
  - Generalised oedema [None]
